FAERS Safety Report 7662381-5 (Version None)
Quarter: 2011Q3

REPORT INFORMATION
  Report Type: 
  Country: None (occurrence: None)
  Receive Date: 20110805
  Receipt Date: 20101230
  Transmission Date: 20111222
  Serious: No
  Sender: FDA-Public Use
  Company Number: US-ABBOTT-11P-163-0694596-00

PATIENT
  Sex: Female
  Weight: 79.45 kg

DRUGS (8)
  1. ASPIRIN [Concomitant]
     Indication: PRODUCT USED FOR UNKNOWN INDICATION
  2. LEVOTHYROXINE SODIUM [Concomitant]
     Indication: PRODUCT USED FOR UNKNOWN INDICATION
  3. PREMARIN [Concomitant]
     Indication: PRODUCT USED FOR UNKNOWN INDICATION
  4. CALCIUM ACETATE [Concomitant]
     Indication: PRODUCT USED FOR UNKNOWN INDICATION
  5. VITAMIN TAB [Concomitant]
     Indication: PRODUCT USED FOR UNKNOWN INDICATION
  6. BENICAR [Concomitant]
     Indication: PRODUCT USED FOR UNKNOWN INDICATION
  7. NIASPAN [Suspect]
     Indication: LOW DENSITY LIPOPROTEIN INCREASED
     Dosage: 750MG AT BEDTIME
     Dates: start: 20101201
  8. AMLODIPINE [Concomitant]
     Indication: PRODUCT USED FOR UNKNOWN INDICATION

REACTIONS (3)
  - PAIN [None]
  - LOW DENSITY LIPOPROTEIN INCREASED [None]
  - PRURITUS GENERALISED [None]
